FAERS Safety Report 10368520 (Version 3)
Quarter: 2014Q3

REPORT INFORMATION
  Report Type: Report from Study
  Country: US (occurrence: US)
  Receive Date: 20140807
  Receipt Date: 20140919
  Transmission Date: 20150326
  Serious: Yes (Other)
  Sender: FDA-Public Use
  Company Number: US-ACTELION-A-NJ2014-101271

PATIENT
  Age: 52 Year
  Sex: Female

DRUGS (2)
  1. MACITENTAN [Suspect]
     Active Substance: MACITENTAN
     Indication: PULMONARY ARTERIAL HYPERTENSION
     Dosage: 10 MG, QD
     Route: 048
     Dates: start: 20140710
  2. REVATIO [Concomitant]
     Active Substance: SILDENAFIL CITRATE

REACTIONS (6)
  - Pulmonary oedema [Unknown]
  - Renal disorder [Unknown]
  - Kidney infection [Unknown]
  - Urinary incontinence surgery [Unknown]
  - Dyspnoea [Unknown]
  - Urinary tract infection [Unknown]
